FAERS Safety Report 8927464 (Version 1)
Quarter: 2012Q4

REPORT INFORMATION
  Report Type: 
  Country: CH (occurrence: CH)
  Receive Date: 20121127
  Receipt Date: 20121127
  Transmission Date: 20130627
  Serious: Yes (Hospitalization)
  Sender: FDA-Public Use
  Company Number: SZ-ASTRAZENECA-2012SE86582

PATIENT
  Age: 88 Year
  Sex: Female

DRUGS (2)
  1. ATACAND PLUS [Suspect]
     Indication: HYPERTENSION
     Dosage: 12.5MG/16MG, 1 TABLET DAILY
     Route: 048
     Dates: end: 20121015
  2. ISOPTIN RR [Concomitant]
     Indication: HYPERTENSION
     Route: 048
     Dates: end: 20121015

REACTIONS (2)
  - Hypovolaemia [Recovered/Resolved]
  - Hyponatraemia [Recovered/Resolved]
